FAERS Safety Report 16405581 (Version 1)
Quarter: 2019Q2

REPORT INFORMATION
  Report Type: Report from Study
  Country: AT (occurrence: AT)
  Receive Date: 20190607
  Receipt Date: 20190607
  Transmission Date: 20190711
  Serious: Yes (Hospitalization, Other)
  Sender: FDA-Public Use
  Company Number: AT-PURDUE-GBR-2019-0067066

PATIENT
  Age: 53 Year
  Sex: Female
  Weight: 53 kg

DRUGS (24)
  1. ZOFRAN [Suspect]
     Active Substance: ONDANSETRON HYDROCHLORIDE
     Indication: NAUSEA
     Dosage: UNK
     Route: 048
     Dates: end: 20190409
  2. VEMURAFENIB. [Suspect]
     Active Substance: VEMURAFENIB
     Dosage: 240 MG, BID (4-0-4)
     Route: 048
     Dates: start: 20190327
  3. PASPERTIN                          /00041902/ [Suspect]
     Active Substance: METOCLOPRAMIDE HYDROCHLORIDE
     Dosage: 10 MG, UNK
     Route: 048
     Dates: end: 20190409
  4. PRAXITEN [Suspect]
     Active Substance: OXAZEPAM
     Indication: ANXIETY
     Dosage: UNK (1.05 WHEN NEEDED)
     Route: 048
     Dates: start: 20190410, end: 20190417
  5. FORTECORTIN                        /00016001/ [Suspect]
     Active Substance: DEXAMETHASONE
     Indication: PROPHYLAXIS
     Dosage: 4 MG, DAILY
     Route: 048
     Dates: start: 20190503
  6. GABAPENTIN. [Suspect]
     Active Substance: GABAPENTIN
     Indication: PAIN
     Dosage: UNK
     Route: 048
  7. VERTIROSAN /00019501/ [Suspect]
     Active Substance: DIMENHYDRINATE
     Indication: NAUSEA
     Dosage: 150 MG, Q3D (1-1-1)
     Route: 048
     Dates: end: 20190424
  8. DRONABINOL. [Suspect]
     Active Substance: DRONABINOL
     Dosage: UNK (DROPS)
     Route: 048
     Dates: end: 20190409
  9. MOLAXOLE [Suspect]
     Active Substance: POLYETHYLENE GLYCOL 3350\POTASSIUM CHLORIDE\SODIUM BICARBONATE\SODIUM CHLORIDE
     Indication: CONSTIPATION
     Dosage: UNK
     Route: 048
  10. HYDAL [Suspect]
     Active Substance: HYDROMORPHONE HYDROCHLORIDE
     Indication: PAIN
     Dosage: 2 MG, DAILY (1-0-0)
     Route: 048
     Dates: start: 20190425
  11. HYDAL [Suspect]
     Active Substance: HYDROMORPHONE HYDROCHLORIDE
     Dosage: 2 MG, UNK
     Route: 048
     Dates: start: 20190327, end: 20190409
  12. VEMURAFENIB. [Suspect]
     Active Substance: VEMURAFENIB
     Indication: PRODUCT USED FOR UNKNOWN INDICATION
     Dosage: 240 MG, BID (4-0-4)
     Route: 048
     Dates: start: 20190407
  13. PASPERTIN                          /00041902/ [Suspect]
     Active Substance: METOCLOPRAMIDE HYDROCHLORIDE
     Indication: NAUSEA
     Dosage: 20 MG, DAILY
     Route: 048
     Dates: start: 20190425, end: 20190502
  14. ESOMEPRAZOLE. [Suspect]
     Active Substance: ESOMEPRAZOLE MAGNESIUM
     Indication: PRODUCT USED FOR UNKNOWN INDICATION
     Dosage: UNK
     Route: 048
  15. PASPERTIN                          /00041902/ [Suspect]
     Active Substance: METOCLOPRAMIDE HYDROCHLORIDE
     Indication: VOMITING
     Dosage: 30 MG, DAILY
     Route: 048
     Dates: start: 20190410, end: 20190424
  16. CALCIDURAN [Suspect]
     Active Substance: ASCORBIC ACID\CALCIUM PHOSPHATE\CHOLECALCIFEROL\CITRIC ACID MONOHYDRATE
     Indication: PRODUCT USED FOR UNKNOWN INDICATION
     Dosage: 500 MG, DAILY (800 IE (VITAMIN D3))
     Route: 048
     Dates: end: 201905
  17. FORTECORTIN                        /00016001/ [Suspect]
     Active Substance: DEXAMETHASONE
     Dosage: 4 MG, DAILY
     Route: 048
     Dates: start: 20190426, end: 20190502
  18. PRAXITEN [Suspect]
     Active Substance: OXAZEPAM
     Indication: INSOMNIA
     Dosage: 15 MG, DAILY (00-1/2)
     Route: 048
     Dates: start: 20190410, end: 20190417
  19. HYDAL [Suspect]
     Active Substance: HYDROMORPHONE HYDROCHLORIDE
     Dosage: 1.3 MG, PRN (WHEN NEEDED, UP TO 6/DAY)
     Route: 048
     Dates: end: 20190424
  20. HYDAL [Suspect]
     Active Substance: HYDROMORPHONE HYDROCHLORIDE
     Dosage: 6 MG, DAILY
     Route: 048
     Dates: start: 20190410, end: 20190424
  21. ZYPREXA [Suspect]
     Active Substance: OLANZAPINE
     Indication: MANIA
     Dosage: UNK
     Route: 048
  22. PRAXITEN [Suspect]
     Active Substance: OXAZEPAM
     Dosage: 0.5 TABLET, PRN (0.5 TABLET IF NEEDED)
     Route: 048
  23. FORTECORTIN                        /00016001/ [Suspect]
     Active Substance: DEXAMETHASONE
     Dosage: 8 MG, DAILY
     Route: 048
     Dates: start: 20190408, end: 20190425
  24. DRONABINOL. [Suspect]
     Active Substance: DRONABINOL
     Indication: PAIN
     Dosage: UNK (3-3-4, DROPS)
     Route: 048
     Dates: end: 20190410

REACTIONS (25)
  - Discomfort [Recovered/Resolved]
  - Defaecation disorder [Recovered/Resolved]
  - Hypokalaemia [Recovered/Resolved]
  - Constipation [Recovered/Resolved]
  - Vertigo [Recovered/Resolved]
  - Renal function test abnormal [Recovering/Resolving]
  - Oedema [Recovering/Resolving]
  - Nodule [Not Recovered/Not Resolved]
  - Abdominal pain upper [Recovered/Resolved]
  - Nausea [Recovered/Resolved]
  - Feeling hot [Recovered/Resolved]
  - Vomiting [Recovered/Resolved]
  - Dry mouth [Recovered/Resolved]
  - Decreased appetite [Recovered/Resolved]
  - Spinal pain [Recovered/Resolved]
  - General physical health deterioration [Recovered/Resolved]
  - Liver function test abnormal [Recovering/Resolving]
  - Anxiety [Recovered/Resolved]
  - Flatulence [Recovered/Resolved]
  - Headache [Recovered/Resolved]
  - Diarrhoea [Recovered/Resolved]
  - Hyperlipidaemia [Not Recovered/Not Resolved]
  - Laboratory test abnormal [Recovering/Resolving]
  - Fatigue [Recovered/Resolved]
  - Abdominal pain upper [Recovered/Resolved]

NARRATIVE: CASE EVENT DATE: 20190327
